FAERS Safety Report 6327083-6 (Version None)
Quarter: 2009Q3

REPORT INFORMATION
  Report Type: 
  Country: None (occurrence: None)
  Receive Date: 20090825
  Receipt Date: 20090819
  Transmission Date: 20100115
  Serious: Yes (Hospitalization)
  Sender: FDA-Public Use
  Company Number: TW-ABBOTT-09P-153-0592273-00

PATIENT
  Age: 72 Year
  Sex: Male

DRUGS (10)
  1. HUMIRA [Suspect]
     Indication: RHEUMATOID ARTHRITIS
     Route: 058
     Dates: start: 20090401, end: 20090806
  2. UNKNOWN LIQUID MEDICINE [Concomitant]
     Indication: COUGH
     Route: 048
  3. QUININE SULFATE [Concomitant]
     Indication: DRUG USE FOR UNKNOWN INDICATION
  4. STEROID [Concomitant]
     Indication: DRUG USE FOR UNKNOWN INDICATION
  5. FOLIC ACID [Concomitant]
     Indication: DRUG USE FOR UNKNOWN INDICATION
  6. FEDIL [Concomitant]
     Indication: DRUG USE FOR UNKNOWN INDICATION
  7. ANTHIUM [Concomitant]
     Indication: DRUG USE FOR UNKNOWN INDICATION
  8. FOLIROMIN [Concomitant]
     Indication: DRUG USE FOR UNKNOWN INDICATION
  9. ESPERAN [Concomitant]
     Indication: DRUG USE FOR UNKNOWN INDICATION
  10. NTS 5 [Concomitant]
     Indication: DRUG USE FOR UNKNOWN INDICATION

REACTIONS (1)
  - HAEMOPTYSIS [None]
